FAERS Safety Report 5218455-1 (Version None)
Quarter: 2007Q1

REPORT INFORMATION
  Report Type: 
  Country: None (occurrence: None)
  Receive Date: 20070123
  Receipt Date: 20070123
  Transmission Date: 20070707
  Serious: No
  Sender: FDA-Public Use
  Company Number: None

PATIENT
  Age: 50 Year
  Sex: Male
  Weight: 111.5849 kg

DRUGS (1)
  1. EQUATE EXTRA STRENGTH PAIN 500MG PERRIGO [Suspect]
     Indication: TOOTHACHE
     Dosage: 2 TABLETS EVERY 6 HOURS PO
     Route: 048
     Dates: start: 20061102, end: 20061104

REACTIONS (6)
  - COLITIS [None]
  - DIARRHOEA HAEMORRHAGIC [None]
  - MUSCLE SPASMS [None]
  - PHARMACEUTICAL PRODUCT COMPLAINT [None]
  - STOMACH DISCOMFORT [None]
  - THERAPEUTIC PRODUCT CONTAMINATION [None]
